FAERS Safety Report 9718351 (Version 1)
Quarter: 2013Q4

REPORT INFORMATION
  Report Type: Spontaneous
  Country: US (occurrence: US)
  Receive Date: 20131125
  Receipt Date: 20131125
  Transmission Date: 20140711
  Serious: No
  Sender: FDA-Public Use
  Company Number: US-VIVUS-2013V1000281

PATIENT
  Age: 54 Year
  Sex: Female
  Weight: 81.72 kg

DRUGS (14)
  1. QSYMIA 3.75MG/23MG [Suspect]
     Indication: PRODUCT USED FOR UNKNOWN INDICATION
     Route: 048
     Dates: start: 20130406
  2. HYDROCHLOROTHIAZIDE [Concomitant]
     Indication: HYPERTENSION
     Route: 048
     Dates: start: 2005
  3. DIOVAN [Concomitant]
     Indication: HYPERTENSION
     Route: 048
     Dates: start: 2009
  4. ESTRADIOL [Concomitant]
     Indication: HORMONE REPLACEMENT THERAPY
     Route: 048
     Dates: start: 2007
  5. UNKNOWN PILL [Concomitant]
     Indication: SYPHILIS
     Route: 048
     Dates: start: 2012
  6. MULTIVITAMIN [Concomitant]
     Indication: VITAMIN SUPPLEMENTATION
     Route: 048
  7. VITAMIN C [Concomitant]
     Indication: VITAMIN SUPPLEMENTATION
     Route: 048
  8. VITAMIN E [Concomitant]
     Indication: VITAMIN SUPPLEMENTATION
     Route: 048
  9. VITAMIN D [Concomitant]
     Indication: VITAMIN SUPPLEMENTATION
     Route: 048
  10. FLAXSEED OIL [Concomitant]
     Indication: MEDICAL DIET
     Route: 048
  11. CALCIUM [Concomitant]
     Indication: MEDICAL DIET
     Route: 048
  12. CHIA SEEDS [Concomitant]
     Indication: MEDICAL DIET
     Route: 048
  13. NIACIN [Concomitant]
     Indication: VITAMIN SUPPLEMENTATION
     Route: 048
  14. CO-Q10 [Concomitant]
     Indication: MEDICAL DIET
     Route: 048

REACTIONS (4)
  - Palpitations [Not Recovered/Not Resolved]
  - Insomnia [Not Recovered/Not Resolved]
  - Dizziness [Not Recovered/Not Resolved]
  - Constipation [Not Recovered/Not Resolved]
